FAERS Safety Report 17041684 (Version 1)
Quarter: 2019Q4

REPORT INFORMATION
  Report Type: Spontaneous
  Country: US (occurrence: US)
  Receive Date: 20191118
  Receipt Date: 20191118
  Transmission Date: 20200122
  Serious: Yes (Hospitalization, Other)
  Sender: FDA-Public Use
  Company Number: US-TEVA-2019-US-1137970

PATIENT
  Sex: Female

DRUGS (1)
  1. CLONAZEPAM ACTAVIS [Suspect]
     Active Substance: CLONAZEPAM
     Route: 065
     Dates: end: 20191108

REACTIONS (11)
  - Intentional self-injury [Unknown]
  - Feeling abnormal [Not Recovered/Not Resolved]
  - Back injury [Not Recovered/Not Resolved]
  - Hypoaesthesia [Not Recovered/Not Resolved]
  - Product substitution issue [Unknown]
  - Dizziness [Not Recovered/Not Resolved]
  - Near death experience [Not Recovered/Not Resolved]
  - Insomnia [Not Recovered/Not Resolved]
  - Accident [Unknown]
  - Fall [Unknown]
  - Visual impairment [Not Recovered/Not Resolved]
